FAERS Safety Report 13913746 (Version 1)
Quarter: 2017Q3

REPORT INFORMATION
  Report Type: Spontaneous
  Country: US (occurrence: US)
  Receive Date: 20170828
  Receipt Date: 20170828
  Transmission Date: 20171127
  Serious: No
  Sender: FDA-Public Use
  Company Number: US-ROCHE-1138743

PATIENT
  Sex: Female
  Weight: 109.87 kg

DRUGS (1)
  1. NUTROPIN AQ [Suspect]
     Active Substance: SOMATROPIN
     Indication: DWARFISM
     Route: 065

REACTIONS (3)
  - Nasopharyngitis [Unknown]
  - Exposure during pregnancy [Unknown]
  - Vomiting [Unknown]
